FAERS Safety Report 5914503-1 (Version None)
Quarter: 2008Q4

REPORT INFORMATION
  Report Type: 
  Country: None (occurrence: None)
  Receive Date: 20081008
  Receipt Date: 20080925
  Transmission Date: 20090506
  Serious: Yes (Hospitalization)
  Sender: FDA-Public Use
  Company Number: A-CH2008-22078

PATIENT
  Age: 77 Year
  Sex: Female
  Weight: 75 kg

DRUGS (8)
  1. TRACLEER [Suspect]
     Indication: PULMONARY ARTERIAL HYPERTENSION
     Dosage: 125 MG, BID, ORAL; 62.5 MG, BID, ORAL
     Route: 048
     Dates: start: 20080630, end: 20080729
  2. TRACLEER [Suspect]
     Indication: PULMONARY ARTERIAL HYPERTENSION
     Dosage: 125 MG, BID, ORAL; 62.5 MG, BID, ORAL
     Route: 048
     Dates: start: 20080730, end: 20080925
  3. LIPITOR [Concomitant]
  4. ATENOLOL [Concomitant]
  5. PERINDOPRIL ERBUMINE [Concomitant]
  6. METFORMIN HCL [Concomitant]
  7. WARFARIN SODIUM [Concomitant]
  8. DIGOXIN [Concomitant]

REACTIONS (8)
  - CARDIAC MURMUR [None]
  - COAGULOPATHY [None]
  - FACE OEDEMA [None]
  - HEPATIC ENZYME INCREASED [None]
  - NO THERAPEUTIC RESPONSE [None]
  - OEDEMA PERIPHERAL [None]
  - OXYGEN SATURATION DECREASED [None]
  - RIGHT VENTRICULAR SYSTOLIC PRESSURE INCREASED [None]
